FAERS Safety Report 16132797 (Version 1)
Quarter: 2019Q1

REPORT INFORMATION
  Report Type: Spontaneous
  Country: US (occurrence: US)
  Receive Date: 20190329
  Receipt Date: 20190329
  Transmission Date: 20190418
  Serious: No
  Sender: FDA-Public Use
  Company Number: US-PFIZER INC-2019092262

PATIENT
  Age: 39 Year
  Sex: Female

DRUGS (1)
  1. XELJANZ XR [Suspect]
     Active Substance: TOFACITINIB CITRATE
     Dosage: UNK (BEGIN XELJANZ 1/2 TABLET WITH FOOD AT SUPPER X 4 DAYS, THEN 1 TAB/DAY)

REACTIONS (2)
  - Drug effect incomplete [Unknown]
  - Wrong technique in product usage process [Unknown]
